FAERS Safety Report 11052145 (Version 2)
Quarter: 2015Q2

REPORT INFORMATION
  Report Type: Spontaneous
  Country: JP (occurrence: JP)
  Receive Date: 20150421
  Receipt Date: 20150608
  Transmission Date: 20150821
  Serious: Yes (Hospitalization, Other)
  Sender: FDA-Public Use
  Company Number: JP-AMGEN-JPNSP2014096748

PATIENT
  Age: 69 Year
  Sex: Male
  Weight: 57 kg

DRUGS (10)
  1. ABATACEPT [Suspect]
     Active Substance: ABATACEPT
     Indication: PRODUCT USED FOR UNKNOWN INDICATION
     Dosage: UNK
     Route: 065
     Dates: start: 20140826
  2. BREDININ [Concomitant]
     Active Substance: MIZORIBINE
     Indication: RHEUMATOID ARTHRITIS
     Dosage: 50 MG, 3X/DAY
     Route: 048
     Dates: start: 20130311
  3. HYPEN                              /00340101/ [Concomitant]
     Indication: ARTHRALGIA
     Dosage: 250 MG, 3X/DAY
     Route: 048
     Dates: start: 20110722
  4. TOCILIZUMAB [Suspect]
     Active Substance: TOCILIZUMAB
     Indication: PRODUCT USED FOR UNKNOWN INDICATION
     Dosage: UNK
     Route: 065
  5. METHYCOBAL [Concomitant]
     Active Substance: METHYLCOBALAMIN
     Indication: PROPHYLAXIS
     Dosage: 500 MUG, 3X/DAY
     Route: 048
     Dates: start: 20130729
  6. ENBREL [Suspect]
     Active Substance: ETANERCEPT
     Indication: RHEUMATOID ARTHRITIS
     Dosage: 25 MG, WEEKLY
     Route: 058
     Dates: start: 20110120, end: 201107
  7. ENBREL [Suspect]
     Active Substance: ETANERCEPT
     Dosage: 50 MG, SINGLE
     Route: 058
     Dates: start: 20141125
  8. MUCOSTA [Concomitant]
     Active Substance: REBAMIPIDE
     Indication: GASTRITIS PROPHYLAXIS
     Dosage: 100 MG, 3X/DAY
     Route: 048
     Dates: start: 20110706
  9. ENBREL [Suspect]
     Active Substance: ETANERCEPT
     Dosage: 50 MG, SINGLE
     Route: 058
     Dates: start: 20141118, end: 20141118
  10. GOLIMUMAB [Suspect]
     Active Substance: GOLIMUMAB
     Indication: PRODUCT USED FOR UNKNOWN INDICATION
     Dosage: UNK
     Route: 065
     Dates: start: 20140204

REACTIONS (8)
  - Arthritis [Unknown]
  - Cellulitis [Recovering/Resolving]
  - Arrhythmia [Recovered/Resolved]
  - Injection site mass [Unknown]
  - Rash [Recovered/Resolved]
  - Injection site swelling [Recovered/Resolved]
  - Dermatitis [Recovered/Resolved]
  - Injection site erythema [Recovered/Resolved]

NARRATIVE: CASE EVENT DATE: 20120930
